FAERS Safety Report 12266158 (Version 1)
Quarter: 2016Q2

REPORT INFORMATION
  Report Type: Spontaneous
  Country: US (occurrence: None)
  Receive Date: 20160413
  Receipt Date: 20160413
  Transmission Date: 20160815
  Serious: No
  Sender: FDA-Public Use
  Company Number: None

PATIENT
  Age: 68 Year
  Sex: Female

DRUGS (1)
  1. TIKOSYN [Suspect]
     Active Substance: DOFETILIDE
     Route: 048
     Dates: start: 20151020

REACTIONS (5)
  - Ear discomfort [None]
  - Rash [None]
  - Trigger finger [None]
  - Musculoskeletal pain [None]
  - Arthralgia [None]
